FAERS Safety Report 20705594 (Version 2)
Quarter: 2022Q2

REPORT INFORMATION
  Report Type: Spontaneous
  Country: JP (occurrence: JP)
  Receive Date: 20220413
  Receipt Date: 20220422
  Transmission Date: 20220721
  Serious: Yes (Other)
  Sender: FDA-Public Use
  Company Number: JP-BAYER-2022A053014

PATIENT
  Age: 77 Year
  Sex: Male

DRUGS (10)
  1. XARELTO [Suspect]
     Active Substance: RIVAROXABAN
     Indication: Atrial fibrillation
     Dosage: 15 MG, QD
     Route: 048
  2. ALLOPURINOL [Concomitant]
     Active Substance: ALLOPURINOL
  3. PRAVASTATIN [Concomitant]
     Active Substance: PRAVASTATIN
  4. TENORMIN [Concomitant]
     Active Substance: ATENOLOL
  5. AMLODIPINE\VALSARTAN [Concomitant]
     Active Substance: AMLODIPINE\VALSARTAN
  6. LIMAPROST [Concomitant]
     Active Substance: LIMAPROST
  7. DIPYRIDAMOLE [Concomitant]
     Active Substance: DIPYRIDAMOLE
  8. MEXITIL [Concomitant]
     Active Substance: MEXILETINE HYDROCHLORIDE
  9. NAFTOPIDIL [Concomitant]
     Active Substance: NAFTOPIDIL
  10. MIRABEGRON [Concomitant]
     Active Substance: MIRABEGRON

REACTIONS (1)
  - Renal impairment [Not Recovered/Not Resolved]

NARRATIVE: CASE EVENT DATE: 20210501
